FAERS Safety Report 4993124-1 (Version None)
Quarter: 2006Q1

REPORT INFORMATION
  Report Type: 
  Country: None (occurrence: None)
  Receive Date: 20060313
  Receipt Date: 20051108
  Transmission Date: 20060701
  Serious: No
  Sender: FDA-Public Use
  Company Number: 2005-BP-18826BP

PATIENT
  Age: 56 Year
  Sex: Male

DRUGS (4)
  1. SPIRIVA [Suspect]
     Indication: CHRONIC OBSTRUCTIVE PULMONARY DISEASE
     Dosage: 18 MCG (18 MCG, 1 CAP DAILY), IH
     Route: 055
     Dates: start: 20051001, end: 20051025
  2. ADVAIR (SERETIDE) [Concomitant]
  3. THEOPHYLLINE [Concomitant]
  4. THEOCHRON [Concomitant]

REACTIONS (8)
  - ALOPECIA [None]
  - ARTHRALGIA [None]
  - DRY SKIN [None]
  - POLLAKIURIA [None]
  - PRURITUS [None]
  - RASH [None]
  - SLEEP DISORDER [None]
  - URTICARIA [None]
